FAERS Safety Report 9779660 (Version 1)
Quarter: 2013Q4

REPORT INFORMATION
  Report Type: Spontaneous
  Country: US (occurrence: US)
  Receive Date: 20131223
  Receipt Date: 20131223
  Transmission Date: 20140711
  Serious: Yes (Other)
  Sender: FDA-Public Use
  Company Number: US-ENDO PHARMACEUTICALS INC.-ZOLP20130023

PATIENT
  Age: 57 Year
  Sex: Male
  Weight: 136.2 kg

DRUGS (1)
  1. ZOLPIDEM TARTRATE TABLETS 10MG [Suspect]
     Indication: INSOMNIA
     Route: 048
     Dates: start: 20130507, end: 20130507

REACTIONS (5)
  - Somnambulism [Recovered/Resolved]
  - Amnesia [Unknown]
  - Speech disorder [Unknown]
  - Abnormal behaviour [Unknown]
  - Hallucination [Unknown]
